FAERS Safety Report 25878020 (Version 1)
Quarter: 2025Q4

REPORT INFORMATION
  Report Type: Report from Study
  Country: PK (occurrence: PK)
  Receive Date: 20251003
  Receipt Date: 20251003
  Transmission Date: 20260118
  Serious: Yes (Other)
  Sender: ROCHE
  Company Number: PK-ROCHE-10000394308

PATIENT
  Age: 47 Year
  Sex: Female
  Weight: 68 kg

DRUGS (5)
  1. OCREVUS [Suspect]
     Active Substance: OCRELIZUMAB
     Indication: Multiple sclerosis
     Route: 042
     Dates: start: 20200210
  2. PHENIRAMINE [Concomitant]
     Active Substance: PHENIRAMINE
     Route: 042
  3. METHYLPREDNISOLONE [Concomitant]
     Active Substance: METHYLPREDNISOLONE
     Route: 042
  4. PROVAS [Concomitant]
     Active Substance: VALSARTAN
     Route: 042
  5. FALGAN [Concomitant]
     Route: 042

REACTIONS (1)
  - Multiple sclerosis [Unknown]

NARRATIVE: CASE EVENT DATE: 20230520
